FAERS Safety Report 9089679 (Version 1)
Quarter: 2013Q1

REPORT INFORMATION
  Report Type: Spontaneous
  Country: IT (occurrence: IT)
  Receive Date: 20130131
  Receipt Date: 20130131
  Transmission Date: 20140127
  Serious: Yes (Other)
  Sender: FDA-Public Use
  Company Number: IT-PFIZER INC-2013036738

PATIENT
  Age: 73 Year
  Sex: Male

DRUGS (2)
  1. UNIPRIL [Suspect]
     Indication: HYPERTENSION
     Dosage: 1 DF, DAILY
     Route: 048
     Dates: start: 20120101, end: 20121225
  2. CARDIOASPIRIN [Concomitant]
     Dosage: UNK

REACTIONS (1)
  - Loss of consciousness [Recovering/Resolving]
